FAERS Safety Report 9783436 (Version 1)
Quarter: 2013Q4

REPORT INFORMATION
  Report Type: Spontaneous
  Country: GB (occurrence: GB)
  Receive Date: 20131226
  Receipt Date: 20131226
  Transmission Date: 20140711
  Serious: Yes (Hospitalization)
  Sender: FDA-Public Use
  Company Number: GB-PFIZER INC-2013365891

PATIENT
  Age: 58 Year
  Sex: 0

DRUGS (3)
  1. TAZOCIN [Suspect]
     Indication: NOSOCOMIAL INFECTION
     Dosage: UNK
     Route: 042
     Dates: start: 20110113, end: 20110119
  2. METRONIDAZOLE [Suspect]
     Indication: PROPHYLAXIS
     Dosage: 500 MG, STAT
     Route: 042
     Dates: start: 20110110, end: 20110110
  3. CEFUROXIME [Suspect]
     Indication: PROPHYLAXIS
     Dosage: 1.5 G, STAT
     Route: 042
     Dates: start: 20110110, end: 20110110

REACTIONS (1)
  - Clostridium difficile infection [Recovered/Resolved]
